FAERS Safety Report 4486841-3 (Version None)
Quarter: 2004Q4

REPORT INFORMATION
  Report Type: 
  Country: None (occurrence: None)
  Receive Date: 20041027
  Receipt Date: 20041014
  Transmission Date: 20050328
  Serious: Yes (Hospitalization)
  Sender: FDA-Public Use
  Company Number: BE-JNJFOC-20040405454

PATIENT
  Age: 79 Year
  Sex: Female

DRUGS (3)
  1. PROPULSID [Suspect]
     Route: 049
  2. PROPULSID [Suspect]
     Route: 049
  3. CREON [Concomitant]
     Indication: PANCREATIC INSUFFICIENCY
     Dosage: 2-3 DOSES
     Route: 049

REACTIONS (3)
  - AGGRESSION [None]
  - MENTAL DISORDER [None]
  - VICTIM OF CRIME [None]
